FAERS Safety Report 5633673-6 (Version None)
Quarter: 2008Q1

REPORT INFORMATION
  Report Type: 
  Country: None (occurrence: None)
  Receive Date: 20080131
  Receipt Date: 20071204
  Transmission Date: 20080703
  Serious: No
  Sender: FDA-Public Use
  Company Number: 163-21880-07120288

PATIENT
  Age: 75 Year
  Sex: Male

DRUGS (7)
  1. REVLIMID [Suspect]
     Indication: MULTIPLE MYELOMA
     Dosage: 25 MG, QD, ORAL
     Route: 048
     Dates: start: 20070219
  2. DECADRON [Concomitant]
  3. ASPIRIN [Concomitant]
  4. PROTONICS [Concomitant]
  5. VERAPAMIL [Concomitant]
  6. LIPITOR [Concomitant]
  7. HYDROCHLOROTHIAZIDE [Concomitant]

REACTIONS (1)
  - DISEASE PROGRESSION [None]
